FAERS Safety Report 12429834 (Version 1)
Quarter: 2016Q2

REPORT INFORMATION
  Report Type: Report from Study
  Country: US (occurrence: US)
  Receive Date: 20160602
  Receipt Date: 20160602
  Transmission Date: 20160815
  Serious: Yes (Other)
  Sender: FDA-Public Use
  Company Number: US-MDT-ADR-2016-00995

PATIENT
  Age: 62 Year
  Sex: Female

DRUGS (2)
  1. COMPOUNDED BACLOFEN [Suspect]
     Active Substance: BACLOFEN
     Dosage: 179.82MCG/DAY
     Route: 037
  2. MORPHINE [Suspect]
     Active Substance: MORPHINE
     Dosage: 0.5694MG/DAY
     Route: 037

REACTIONS (6)
  - Wound dehiscence [Recovered/Resolved]
  - Medical device site infection [Recovered/Resolved]
  - Pyrexia [Recovered/Resolved]
  - Wound drainage [Recovered/Resolved]
  - Stitch abscess [Recovered/Resolved]
  - Impaired healing [Recovered/Resolved]

NARRATIVE: CASE EVENT DATE: 20150113
